FAERS Safety Report 9987958 (Version 2)
Quarter: 2014Q1

REPORT INFORMATION
  Report Type: Spontaneous
  Country: US (occurrence: US)
  Receive Date: 20140307
  Receipt Date: 20140307
  Transmission Date: 20141002
  Serious: Yes (Hospitalization, Other)
  Sender: FDA-Public Use
  Company Number: US-RB-062658-14

PATIENT
  Age: 51 Year
  Sex: Female

DRUGS (6)
  1. BUPRENORPHINE GENERIC [Suspect]
     Dosage: CUTTING; TAKING A HALF OF A TABLET DAILY
     Route: 060
     Dates: start: 201202
  2. BUPRENORPHINE GENERIC [Suspect]
     Indication: DRUG DEPENDENCE
     Dosage: CUTTING; TAKING 2 AND A HALF OF TABLET DAILY
     Route: 060
     Dates: end: 20131215
  3. SUBOXONE FILM [Suspect]
     Indication: DRUG DEPENDENCE
     Dosage: SUBOXONE FILM; CUTTING; TAKES 1/2 OR 1/4 OF FILM AS NEEDED
     Route: 060
     Dates: start: 201401
  4. CYMBALTA [Concomitant]
     Indication: DEPRESSION
     Route: 048
     Dates: start: 201202
  5. TRAZODONE [Concomitant]
     Indication: DEPRESSION
     Dosage: 150 TO 200 MG DAILY AS NEEDED
     Route: 048
     Dates: start: 201202
  6. VALIUM [Concomitant]
     Indication: INSOMNIA
     Dosage: DOSING DETAILS UNKNOWN
     Route: 048
     Dates: end: 201312

REACTIONS (12)
  - Wrong technique in drug usage process [Not Recovered/Not Resolved]
  - Osteomyelitis [Recovered/Resolved]
  - Anxiety [Recovered/Resolved]
  - Tooth disorder [Recovered/Resolved]
  - Swelling face [Recovered/Resolved]
  - Sepsis [Recovered/Resolved]
  - Drug withdrawal syndrome [Recovered/Resolved]
  - Panic attack [Recovered/Resolved]
  - Hyperhidrosis [Recovered/Resolved]
  - Pain [Recovered/Resolved]
  - Heart rate irregular [Recovered/Resolved]
  - Substance abuse [Not Recovered/Not Resolved]
